FAERS Safety Report 5724565-2 (Version None)
Quarter: 2008Q2

REPORT INFORMATION
  Report Type: 
  Country: None (occurrence: None)
  Receive Date: 20080429
  Receipt Date: 20080429
  Transmission Date: 20081010
  Serious: No
  Sender: FDA-Public Use
  Company Number: None

PATIENT
  Sex: Female
  Weight: 64.4108 kg

DRUGS (2)
  1. RECLIPSEN - GENERIC FOR DESOGEN [Suspect]
     Indication: CONTRACEPTION
     Dosage: ONCE TAB ONCE PER DAY ORAL
     Route: 048
     Dates: start: 20070301
  2. RECLIPSEN - GENERIC FOR DESOGEN [Suspect]
     Indication: CONTRACEPTION
     Dosage: ONCE TAB ONCE PER DAY ORAL
     Route: 048
     Dates: start: 20070401

REACTIONS (1)
  - MIGRAINE [None]
